FAERS Safety Report 11687819 (Version 1)
Quarter: 2015Q4

REPORT INFORMATION
  Report Type: Report from Study
  Country: HU (occurrence: HU)
  Receive Date: 20151030
  Receipt Date: 20151030
  Transmission Date: 20160304
  Serious: Yes (Other)
  Sender: FDA-Public Use
  Company Number: HU-JNJFOC-20151016984

PATIENT
  Age: 52 Year
  Sex: Female
  Weight: 86 kg

DRUGS (2)
  1. STELARA [Suspect]
     Active Substance: USTEKINUMAB
     Indication: PSORIASIS
     Route: 058
     Dates: start: 20141001
  2. INSULIN [Concomitant]
     Active Substance: INSULIN NOS
     Indication: DIABETES MELLITUS
     Route: 065
     Dates: start: 2011

REACTIONS (3)
  - Sensory loss [Not Recovered/Not Resolved]
  - Dysstasia [Not Recovered/Not Resolved]
  - Blood pressure increased [Unknown]

NARRATIVE: CASE EVENT DATE: 201510
